FAERS Safety Report 5255232-X (Version None)
Quarter: 2007Q1

REPORT INFORMATION
  Report Type: 
  Country: None (occurrence: None)
  Receive Date: 20070305
  Receipt Date: 20070226
  Transmission Date: 20070707
  Serious: Yes (Hospitalization)
  Sender: FDA-Public Use
  Company Number: US-GILEAD-2007-0011419

PATIENT
  Sex: Male
  Weight: 57.204 kg

DRUGS (8)
  1. VISTIDE [Suspect]
     Indication: RESPIRATORY PAPILLOMA
     Route: 026
     Dates: start: 20070221, end: 20070221
  2. ULTIVA [Suspect]
     Indication: PAIN
     Route: 041
  3. PROPOFOL [Suspect]
     Indication: GENERAL ANAESTHESIA
  4. ZOFRAN [Concomitant]
     Indication: NAUSEA
  5. ZOFRAN [Concomitant]
     Indication: VOMITING
  6. KEFZOL [Concomitant]
     Indication: PROPHYLAXIS
     Route: 041
  7. DECADRON [Concomitant]
     Indication: NAUSEA
     Route: 041
  8. DECADRON [Concomitant]
     Indication: VOMITING

REACTIONS (2)
  - PULMONARY OEDEMA [None]
  - RESPIRATORY DEPRESSION [None]
